FAERS Safety Report 10684913 (Version 1)
Quarter: 2014Q4

REPORT INFORMATION
  Report Type: Spontaneous
  Country: US (occurrence: US)
  Receive Date: 20141231
  Receipt Date: 20141231
  Transmission Date: 20150529
  Serious: No
  Sender: FDA-Public Use
  Company Number: US-SHIRE-US201409110

PATIENT
  Sex: Female

DRUGS (1)
  1. LIALDA [Suspect]
     Active Substance: MESALAMINE
     Indication: PRODUCT USED FOR UNKNOWN INDICATION
     Dosage: 2.4 G ( TWO X 1.2 G), 1X/DAY:QD
     Route: 048
     Dates: start: 201402

REACTIONS (2)
  - Alopecia [Unknown]
  - Pruritus [Unknown]

NARRATIVE: CASE EVENT DATE: 2014
